FAERS Safety Report 13347437 (Version 2)
Quarter: 2017Q1

REPORT INFORMATION
  Report Type: Spontaneous
  Country: US (occurrence: US)
  Receive Date: 20170317
  Receipt Date: 20170322
  Transmission Date: 20170428
  Serious: Yes (Other)
  Sender: FDA-Public Use
  Company Number: US-JNJFOC-20170314625

PATIENT
  Sex: Female

DRUGS (2)
  1. TIZANIDINE. [Suspect]
     Active Substance: TIZANIDINE
     Indication: PRODUCT USED FOR UNKNOWN INDICATION
     Route: 065
  2. ULTRAM [Suspect]
     Active Substance: TRAMADOL HYDROCHLORIDE
     Indication: PRODUCT USED FOR UNKNOWN INDICATION
     Route: 065

REACTIONS (8)
  - Loss of consciousness [Unknown]
  - Concussion [Recovered/Resolved]
  - Pulmonary mass [Unknown]
  - Aneurysm [Unknown]
  - Head injury [Unknown]
  - Syncope [Unknown]
  - Anaemia [Unknown]
  - Urinary tract infection [Unknown]
